FAERS Safety Report 4365021-6 (Version None)
Quarter: 2004Q2

REPORT INFORMATION
  Report Type: 
  Country: None (occurrence: None)
  Receive Date: 20040521
  Receipt Date: 20040511
  Transmission Date: 20050107
  Serious: Yes (Hospitalization)
  Sender: FDA-Public Use
  Company Number: 2004031337

PATIENT
  Age: 47 Year
  Sex: Male

DRUGS (6)
  1. ATARAX [Suspect]
     Indication: ILL-DEFINED DISORDER
     Dosage: 400 MG, ORAL
     Route: 048
     Dates: start: 20040309, end: 20040328
  2. MEPROBAMATE [Suspect]
     Indication: ILL-DEFINED DISORDER
     Dosage: 1000 MG, ORAL
     Route: 048
     Dates: start: 20040322, end: 20040327
  3. VALPROATE SODIUM [Suspect]
     Indication: ILL-DEFINED DISORDER
     Dosage: 1000 MG, ORAL
     Route: 048
     Dates: start: 20040227, end: 20040328
  4. AMITRIPTYLINE HYDROCHLORIDE [Suspect]
     Indication: DEPRESSION
     Dosage: 50 MG, ORAL
     Route: 048
     Dates: start: 20040314, end: 20040328
  5. CLOMIPRAMINE HCL [Suspect]
     Indication: DEPRESSION
     Dosage: 75 MG, ORAL
     Route: 048
     Dates: start: 20030601, end: 20040328
  6. LORAZEPAM MESIALTE (LORAZEPAM MESILATE) [Concomitant]

REACTIONS (7)
  - ACCOMMODATION DISORDER [None]
  - COGWHEEL RIGIDITY [None]
  - DIFFICULTY IN WALKING [None]
  - HYPERHIDROSIS [None]
  - TREMOR [None]
  - URINARY TRACT DISORDER [None]
  - VERTIGO [None]
